FAERS Safety Report 4424381-8 (Version None)
Quarter: 2004Q3

REPORT INFORMATION
  Report Type: 
  Country: None (occurrence: None)
  Receive Date: 20040812
  Receipt Date: 20040802
  Transmission Date: 20050211
  Serious: Yes (Hospitalization)
  Sender: FDA-Public Use
  Company Number: DE-MERCK-0408DEU00008

PATIENT
  Age: 76 Year
  Sex: Female

DRUGS (3)
  1. MORPHINE [Suspect]
     Indication: PAIN
     Route: 065
     Dates: end: 20040705
  2. MORPHINE [Suspect]
     Route: 065
     Dates: start: 20040701
  3. VIOXX [Suspect]
     Route: 048
     Dates: start: 20040601, end: 20040705

REACTIONS (2)
  - DELIRIUM [None]
  - RENAL FAILURE ACUTE [None]
